FAERS Safety Report 4550947-0 (Version None)
Quarter: 2004Q4

REPORT INFORMATION
  Report Type: 
  Country: None (occurrence: None)
  Receive Date: 20041217
  Receipt Date: 20040818
  Transmission Date: 20050328
  Serious: No
  Sender: FDA-Public Use
  Company Number: 2004-BP-06993BP

PATIENT
  Age: 94 Year
  Sex: Male

DRUGS (1)
  1. SPIRIVA [Suspect]
     Indication: CHRONIC OBSTRUCTIVE AIRWAYS DISEASE
     Dosage: (18 MCG), IH
     Route: 055
     Dates: start: 20040601, end: 20040801

REACTIONS (2)
  - DRY MOUTH [None]
  - DYSURIA [None]
